FAERS Safety Report 9905248 (Version 1)
Quarter: 2013Q2

REPORT INFORMATION
  Report Type: Spontaneous
  Country: US (occurrence: None)
  Receive Date: 20130305
  Receipt Date: 20130305
  Transmission Date: 20140414
  Serious: Yes (Hospitalization)
  Sender: FDA-Public Use
  Company Number: 163-21880-12030717

PATIENT
  Age: 81 Year
  Sex: Female

DRUGS (15)
  1. REVLIMID [Suspect]
     Indication: PLASMA CELL MYELOMA
     Dosage: 25 MG , 1 IN 1 D, PO
     Route: 048
     Dates: start: 20120129, end: 20120210
  2. ADVAIR (SERETIDE MITE) [Concomitant]
  3. MAGNESIUM OXIDE (MAGNESIUM OXIDE) [Concomitant]
  4. VESICARE (SOLIFENACIN SUCCINATE) [Concomitant]
  5. HYDROCODONE-ACETAMINOPHEN (VICODIN) [Concomitant]
  6. PRILOSEC (OMEPRAZOLE) [Concomitant]
  7. CALCIUM + VITAMIN D (LEKOVIT CA) [Concomitant]
  8. FOLIC ACID (FOLIC ACID) [Concomitant]
  9. FERROUS SULFATE (FERROUS SULFATE) [Concomitant]
  10. NORVASC (AMLODIPINE BESILATE) [Concomitant]
  11. VITAMIN D (ERGOCALCIFEROL) [Concomitant]
  12. BABY ASPIRIN (ACETYLSALICYLIC ACID) [Concomitant]
  13. FUROSEMIDE (FUROSEMIDE) [Concomitant]
  14. METOPROLOL (METOPROLOL) [Concomitant]
  15. ACTONEL (RISEDRONATE SODIUM) [Concomitant]

REACTIONS (1)
  - Oedema peripheral [None]
